FAERS Safety Report 7686942-2 (Version None)
Quarter: 2011Q3

REPORT INFORMATION
  Report Type: 
  Country: None (occurrence: None)
  Receive Date: 20110816
  Receipt Date: 20110811
  Transmission Date: 20111222
  Serious: Yes (Other)
  Sender: FDA-Public Use
  Company Number: GB-ABBOTT-11P-167-0845713-00

PATIENT
  Sex: Female

DRUGS (3)
  1. HUMIRA [Suspect]
     Indication: RHEUMATOID ARTHRITIS
     Dosage: ONGOING
     Route: 058
  2. FLU/SWINE FLU JAB [Concomitant]
     Indication: PRODUCT USED FOR UNKNOWN INDICATION
     Dates: start: 20101016, end: 20101016
  3. METHOTREXATE [Concomitant]
     Indication: PRODUCT USED FOR UNKNOWN INDICATION
     Dosage: ONGOING
     Dates: start: 20040415

REACTIONS (6)
  - H1N1 INFLUENZA [None]
  - VERTIGO POSITIONAL [None]
  - TINNITUS [None]
  - MOVEMENT DISORDER [None]
  - MOOD SWINGS [None]
  - GENERAL PHYSICAL HEALTH DETERIORATION [None]
